FAERS Safety Report 6900063-5 (Version None)
Quarter: 2010Q3

REPORT INFORMATION
  Report Type: 
  Country: None (occurrence: None)
  Receive Date: 20100708
  Receipt Date: 20100318
  Transmission Date: 20110219
  Serious: Yes (Other)
  Sender: FDA-Public Use
  Company Number: 2010036001

PATIENT
  Age: 42 Year
  Sex: Female
  Weight: 93 kg

DRUGS (8)
  1. CHANTIX [Suspect]
     Indication: SMOKING CESSATION THERAPY
     Dosage: ORAL
     Route: 048
     Dates: start: 20090101
  2. GEODON [Concomitant]
  3. PROZAC [Concomitant]
  4. MORPHINE SULFATE INJ [Concomitant]
  5. OXYCONTIN [Concomitant]
  6. XANAX [Concomitant]
  7. TEMAZEPAM [Concomitant]
  8. ASPIRIN [Concomitant]

REACTIONS (4)
  - ABNORMAL DREAMS [None]
  - AGGRESSION [None]
  - ANGER [None]
  - SUICIDAL IDEATION [None]
